FAERS Safety Report 9044094 (Version 1)
Quarter: 2013Q1

REPORT INFORMATION
  Report Type: Spontaneous
  Country: FR (occurrence: FR)
  Receive Date: 20130130
  Receipt Date: 20130130
  Transmission Date: 20140127
  Serious: Yes (Death)
  Sender: FDA-Public Use
  Company Number: FR-JNJFOC-20130113656

PATIENT
  Sex: 0

DRUGS (1)
  1. DARUNAVIR [Suspect]
     Indication: HIV INFECTION
     Route: 065

REACTIONS (1)
  - Death [Fatal]
